FAERS Safety Report 6783620-9 (Version None)
Quarter: 2010Q2

REPORT INFORMATION
  Report Type: 
  Country: None (occurrence: None)
  Receive Date: 20100622
  Receipt Date: 20100609
  Transmission Date: 20101027
  Serious: Yes (Hospitalization)
  Sender: FDA-Public Use
  Company Number: JP-ROCHE-685802

PATIENT
  Age: 66 Year
  Sex: Male

DRUGS (3)
  1. CELLCEPT [Suspect]
     Indication: PROPHYLAXIS AGAINST TRANSPLANT REJECTION
     Route: 048
  2. CYCLOSPORINE [Concomitant]
     Dosage: DOSE FORM: UNCERTAINTY
     Route: 065
  3. PREDNISOLONE [Concomitant]
     Dosage: DOSE FORM: UNCERTAINTY
     Route: 065

REACTIONS (2)
  - CHRONIC HEPATITIS [None]
  - HEPATIC NEOPLASM MALIGNANT [None]
